FAERS Safety Report 6687138-3 (Version None)
Quarter: 2010Q2

REPORT INFORMATION
  Report Type: 
  Country: None (occurrence: None)
  Receive Date: 20100419
  Receipt Date: 20100409
  Transmission Date: 20101027
  Serious: Yes (Other)
  Sender: FDA-Public Use
  Company Number: US-ABBOTT-10P-163-0637390-00

PATIENT
  Age: 38 Year
  Sex: Female

DRUGS (2)
  1. LUPRON [Suspect]
     Indication: ENDOMETRIOSIS
     Route: 030
  2. NORETHINDRONE [Concomitant]
     Indication: ENDOMETRIOSIS

REACTIONS (1)
  - HAEMOTHORAX [None]
